FAERS Safety Report 11403275 (Version 1)
Quarter: 2015Q3

REPORT INFORMATION
  Report Type: Spontaneous
  Country: ES (occurrence: ES)
  Receive Date: 20150821
  Receipt Date: 20150821
  Transmission Date: 20151125
  Serious: Yes (Other)
  Sender: FDA-Public Use
  Company Number: ES-BAYER-2015-398980

PATIENT
  Age: 60 Year
  Sex: Female

DRUGS (1)
  1. SORAFENIB (RAF KINASE INHIBITOR) [Suspect]
     Active Substance: SORAFENIB
     Indication: LUNG ADENOCARCINOMA METASTATIC
     Dosage: 400 MG, BID
     Dates: start: 201408, end: 201502

REACTIONS (4)
  - Diarrhoea [None]
  - Pain [None]
  - Tumour necrosis [None]
  - Palmar-plantar erythrodysaesthesia syndrome [None]

NARRATIVE: CASE EVENT DATE: 2014
